FAERS Safety Report 9343134 (Version 3)
Quarter: 2013Q4

REPORT INFORMATION
  Report Type: Spontaneous
  Country: GB (occurrence: GB)
  Receive Date: 20130611
  Receipt Date: 20131121
  Transmission Date: 20140711
  Serious: Yes (Other)
  Sender: FDA-Public Use
  Company Number: GB-MYLANLABS-2013S1012098

PATIENT
  Age: 39 Year
  Sex: Female

DRUGS (6)
  1. CLOMIPRAMINE [Suspect]
     Indication: DEPRESSION
     Route: 048
     Dates: start: 20110221, end: 20120820
  2. CLOMIPRAMINE [Suspect]
     Indication: ANXIETY
     Route: 048
     Dates: start: 20110221, end: 20120820
  3. CLOMIPRAMINE [Suspect]
     Indication: DEPRESSION
  4. CLOMIPRAMINE [Suspect]
     Indication: ANXIETY
  5. HALOPERIDOL [Concomitant]
     Indication: PSYCHOTIC DISORDER
     Route: 048
     Dates: start: 20051026, end: 20111025
  6. PIPOTIAZINE [Concomitant]
     Indication: PSYCHOTIC DISORDER
     Route: 030
     Dates: start: 20110606, end: 20120606

REACTIONS (8)
  - Bone loss [Unknown]
  - Tooth erosion [Unknown]
  - Tooth loss [Unknown]
  - Dental caries [Unknown]
  - Gingival bleeding [Unknown]
  - Gingival swelling [Recovering/Resolving]
  - Weight increased [Recovered/Resolved]
  - Gingival recession [Recovered/Resolved]
